FAERS Safety Report 23386233 (Version 1)
Quarter: 2024Q1

REPORT INFORMATION
  Report Type: Report from Study
  Country: IT (occurrence: IT)
  Receive Date: 20240110
  Receipt Date: 20240110
  Transmission Date: 20240410
  Serious: Yes (Other)
  Sender: FDA-Public Use
  Company Number: IT-UCBSA-2024000066

PATIENT

DRUGS (5)
  1. LEVETIRACETAM [Suspect]
     Active Substance: LEVETIRACETAM
     Indication: Epilepsy
     Dosage: DOSAGE BETWEEN 1000 MG AND 2500 MG DAILY
  2. LEVETIRACETAM [Suspect]
     Active Substance: LEVETIRACETAM
     Indication: Off label use
  3. LACOSAMIDE [Suspect]
     Active Substance: LACOSAMIDE
     Indication: Epilepsy
     Dosage: DOSAGE BETWEEN 100 AND 200 MG DAILY
  4. LACOSAMIDE [Suspect]
     Active Substance: LACOSAMIDE
     Indication: Off label use
  5. TEMOZOLOMIDE [Concomitant]
     Active Substance: TEMOZOLOMIDE
     Indication: Glioblastoma
     Dosage: UNK

REACTIONS (9)
  - Seizure [Unknown]
  - Psychomotor hyperactivity [Unknown]
  - Thinking abnormal [Unknown]
  - Irritability [Unknown]
  - Apraxia [Unknown]
  - Somnolence [Unknown]
  - Abdominal pain upper [Unknown]
  - Gastrointestinal toxicity [Unknown]
  - Off label use [Unknown]
